FAERS Safety Report 5535204-8 (Version None)
Quarter: 2007Q4

REPORT INFORMATION
  Report Type: 
  Country: None (occurrence: None)
  Receive Date: 20071206
  Receipt Date: 20071130
  Transmission Date: 20080405
  Serious: Yes (Other)
  Sender: FDA-Public Use
  Company Number: US-BAYER-US-2007-021561

PATIENT
  Age: 50 Year
  Sex: Female

DRUGS (10)
  1. MAGNEVIST [Suspect]
     Indication: ANGIOGRAM
     Dosage: UNIT DOSE: 30 ML
     Route: 013
     Dates: start: 20061214, end: 20061214
  2. MAGNEVIST [Suspect]
     Dosage: UNIT DOSE: 110 ML
     Route: 013
     Dates: start: 20070102, end: 20070102
  3. MAGNEVIST [Suspect]
     Dosage: UNIT DOSE: 40 ML
     Route: 042
     Dates: start: 20060110, end: 20060110
  4. MAGNEVIST [Suspect]
     Dosage: UNIT DOSE: 40 ML
     Route: 042
     Dates: start: 20060328, end: 20060328
  5. MAGNEVIST [Suspect]
     Dosage: UNIT DOSE: 40 ML
     Route: 042
     Dates: start: 20060509, end: 20060509
  6. MAGNEVIST [Suspect]
     Dosage: UNIT DOSE: 30 ML
     Route: 042
     Dates: start: 20070109, end: 20070109
  7. MAGNEVIST [Suspect]
     Dosage: UNIT DOSE: 38 ML
     Route: 042
     Dates: start: 20060718, end: 20060718
  8. MAGNEVIST [Suspect]
     Dosage: UNIT DOSE: 40 ML
     Route: 042
     Dates: start: 20060829, end: 20060829
  9. MAGNEVIST [Suspect]
     Dosage: UNIT DOSE: 38 ML
     Route: 042
     Dates: start: 20061003, end: 20061003
  10. MAGNEVIST [Suspect]
     Dosage: UNIT DOSE: 40 ML
     Route: 042
     Dates: start: 20061128, end: 20061128

REACTIONS (1)
  - NEPHROGENIC SYSTEMIC FIBROSIS [None]
